FAERS Safety Report 13330251 (Version 2)
Quarter: 2017Q2

REPORT INFORMATION
  Report Type: Spontaneous
  Country: IE (occurrence: IE)
  Receive Date: 20170314
  Receipt Date: 20170406
  Transmission Date: 20170830
  Serious: Yes (Other)
  Sender: FDA-Public Use
  Company Number: IE-ROCHE-1905210

PATIENT
  Age: 73 Year
  Sex: Male

DRUGS (2)
  1. SODIUM CHLORIDE. [Suspect]
     Active Substance: SODIUM CHLORIDE
     Indication: MEDICATION DILUTION
     Dosage: APPROXIMATE INFUSION TIME 30 MINUTES
     Route: 042
  2. ROCEPHIN [Suspect]
     Active Substance: CEFTRIAXONE SODIUM
     Indication: PRODUCT USED FOR UNKNOWN INDICATION
     Dosage: APPROXIMATE INFUSION TIME 30 MINUTES; SOLUTION FOR INJECTION OR INFUSION
     Route: 042

REACTIONS (6)
  - Viral upper respiratory tract infection [Recovered/Resolved]
  - Joint swelling [Recovered/Resolved]
  - Eye infection [Recovered/Resolved]
  - Decreased appetite [Recovered/Resolved]
  - Vomiting [Recovered/Resolved]
  - Diarrhoea [Recovered/Resolved]

NARRATIVE: CASE EVENT DATE: 201702
